FAERS Safety Report 11640919 (Version 1)
Quarter: 2015Q4

REPORT INFORMATION
  Report Type: Spontaneous
  Country: US (occurrence: None)
  Receive Date: 20151016
  Receipt Date: 20151016
  Transmission Date: 20160304
  Serious: Yes (Death)
  Sender: FDA-Public Use
  Company Number: None

PATIENT
  Age: 6 Week
  Sex: Male
  Weight: 2.16 kg

DRUGS (9)
  1. NEVIRAPINE. [Suspect]
     Active Substance: NEVIRAPINE
     Indication: PROPHYLAXIS AGAINST HIV INFECTION
     Route: 048
     Dates: start: 20150723, end: 20150905
  2. HEXAXIM (DTAP-IPV-HIB 1) [Concomitant]
  3. HEPATITIS D [Concomitant]
  4. BACTRIM [Concomitant]
     Active Substance: SULFAMETHOXAZOLE\TRIMETHOPRIM
  5. PREVNAR [Concomitant]
     Active Substance: PNEUMOCOCCAL 7-VALENT CONJUGATE VACCINE (DIPHTHERIA CRM197 PROTEIN)
  6. ROTA VIRUS [Concomitant]
  7. POLIOMYELITIS VACCINE NOS [Concomitant]
     Active Substance: POLIOMYELITIS VACCINE
  8. FERROUS GLUCONATE [Concomitant]
     Active Substance: FERROUS GLUCONATE
  9. MUTIVITAMIN [Concomitant]

REACTIONS (6)
  - Oral candidiasis [None]
  - Dehydration [None]
  - Lymphadenopathy [None]
  - Somnolence [None]
  - Respiratory tract infection [None]
  - Hypophagia [None]

NARRATIVE: CASE EVENT DATE: 20150906
